FAERS Safety Report 7655742-1 (Version None)
Quarter: 2011Q3

REPORT INFORMATION
  Report Type: 
  Country: None (occurrence: None)
  Receive Date: 20110804
  Receipt Date: 20110730
  Transmission Date: 20111222
  Serious: Yes (Hospitalization)
  Sender: FDA-Public Use
  Company Number: JP-GENZYME-THYR-1000387

PATIENT

DRUGS (12)
  1. CARVEDILOL [Concomitant]
     Dosage: UNK
  2. AMLODIPINE [Concomitant]
     Dosage: UNK
  3. THYROGEN [Suspect]
     Indication: DIAGNOSTIC PROCEDURE
     Dosage: 0.9 MG, UNK
     Route: 030
     Dates: start: 20100315, end: 20100316
  4. LEVOTHYROXINE SODIUM [Concomitant]
     Indication: PROPHYLAXIS
     Dosage: UNK
  5. FRANDOL [Concomitant]
     Dosage: UNK
  6. ASPIRIN [Concomitant]
     Dosage: UNK
  7. DIOVAN [Concomitant]
     Dosage: UNK
  8. SIGMART [Concomitant]
     Dosage: UNK
  9. ALFAROL [Concomitant]
     Dosage: UNK
  10. RADIOACTIVE IODINE SOLUTION [Suspect]
     Indication: DIAGNOSTIC PROCEDURE
     Dosage: 13 MCI, ONCE
     Route: 048
     Dates: start: 20100317, end: 20100317
  11. PRAVASTATIN SODIUM [Concomitant]
     Dosage: UNK
  12. VITAMIN D [Concomitant]
     Dosage: UNK

REACTIONS (1)
  - ACUTE MYOCARDIAL INFARCTION [None]
